FAERS Safety Report 6270043-4 (Version None)
Quarter: 2009Q3

REPORT INFORMATION
  Report Type: 
  Country: None (occurrence: None)
  Receive Date: 20090716
  Receipt Date: 20090707
  Transmission Date: 20100115
  Serious: Yes (Hospitalization)
  Sender: FDA-Public Use
  Company Number: NL-NAPPMUNDI-GBR-2009-0005336

PATIENT
  Sex: Male

DRUGS (4)
  1. OXYCONTIN [Suspect]
     Indication: PAIN
     Dosage: 5 MG, BID
     Dates: start: 20080410, end: 20080508
  2. DICLOFENAC [Concomitant]
     Indication: DRUG USE FOR UNKNOWN INDICATION
     Dosage: 100 MG, BID
     Route: 065
  3. CLINDAMYCINE                       /00166002/ [Concomitant]
     Indication: DRUG USE FOR UNKNOWN INDICATION
     Dosage: 300 MG, TID
     Route: 065
  4. TAMSULOSIN HCL [Concomitant]
     Indication: DRUG USE FOR UNKNOWN INDICATION
     Dosage: 0.4 MG, DAILY
     Route: 065

REACTIONS (1)
  - HOSPITALISATION [None]
